FAERS Safety Report 9893463 (Version 1)
Quarter: 2014Q1

REPORT INFORMATION
  Report Type: Spontaneous
  Country: GB (occurrence: GB)
  Receive Date: 20140213
  Receipt Date: 20140213
  Transmission Date: 20141002
  Serious: Yes (Hospitalization)
  Sender: FDA-Public Use
  Company Number: GB-BRISTOL-MYERS SQUIBB COMPANY-20137196

PATIENT
  Age: 70 Year
  Sex: Male

DRUGS (10)
  1. KENALOG INJ [Suspect]
     Indication: ROTATOR CUFF SYNDROME
     Route: 014
     Dates: start: 20140102
  2. NORMAL SALINE [Suspect]
     Indication: ROTATOR CUFF SYNDROME
     Route: 014
     Dates: start: 20140102
  3. WARFARIN [Concomitant]
  4. METFORMIN [Concomitant]
  5. PAROXETINE [Concomitant]
  6. BISOPROLOL [Concomitant]
  7. SIMVASTATIN [Concomitant]
  8. PREGABALIN [Concomitant]
  9. LANSOPRAZOLE [Concomitant]
  10. ACETAMINOPHEN + CODEINE PHOSPHATE [Concomitant]

REACTIONS (2)
  - Arthritis [Recovered/Resolved]
  - Musculoskeletal pain [Unknown]
